FAERS Safety Report 16579902 (Version 1)
Quarter: 2019Q3

REPORT INFORMATION
  Report Type: Spontaneous
  Country: DE (occurrence: DE)
  Receive Date: 20190716
  Receipt Date: 20190716
  Transmission Date: 20191004
  Serious: Yes (Hospitalization)
  Sender: FDA-Public Use
  Company Number: DE-TEVA-2019-DE-1075796

PATIENT
  Age: 82 Year
  Sex: Female

DRUGS (5)
  1. DULCOLAX NOS [Suspect]
     Active Substance: BISACODYL OR DOCUSATE SODIUM
     Dosage: NK MG, NK
  2. LAXOBERAL [Suspect]
     Active Substance: SODIUM PICOSULFATE
     Dosage: NK MG, NK
     Route: 065
  3. RISPERIDON [Concomitant]
     Active Substance: RISPERIDONE
     Dosage: 0.5 MG, 1-1-1-0
  4. LACTULOSE. [Suspect]
     Active Substance: LACTULOSE
     Dosage: NK MG, NK
  5. OPIPRAMOL [Suspect]
     Active Substance: OPIPRAMOL
     Dosage: 50 MG, 1-1-1-0

REACTIONS (2)
  - Abdominal pain [Unknown]
  - Constipation [Unknown]
